FAERS Safety Report 18664940 (Version 6)
Quarter: 2021Q3

REPORT INFORMATION
  Report Type: Report from Study
  Country: US (occurrence: US)
  Receive Date: 20201225
  Receipt Date: 20210830
  Transmission Date: 20211014
  Serious: Yes (Hospitalization, Other)
  Sender: FDA-Public Use
  Company Number: US-TAKEDA-2020TUS058673

PATIENT
  Age: 70 Year
  Sex: Male

DRUGS (8)
  1. TEDUGLUTIDE [Suspect]
     Active Substance: TEDUGLUTIDE
     Indication: SHORT-BOWEL SYNDROME
     Dosage: 0.31 MILLILITER, QD
     Route: 058
     Dates: start: 20201120
  2. TEDUGLUTIDE [Suspect]
     Active Substance: TEDUGLUTIDE
     Indication: SHORT-BOWEL SYNDROME
     Dosage: 0.31 MILLILITER, QD
     Route: 058
     Dates: start: 20201120
  3. TEDUGLUTIDE [Suspect]
     Active Substance: TEDUGLUTIDE
     Indication: SHORT-BOWEL SYNDROME
     Dosage: 0.31 MILLILITER, QD
     Route: 058
     Dates: start: 20201120
  4. TEDUGLUTIDE [Suspect]
     Active Substance: TEDUGLUTIDE
     Indication: CROHN^S DISEASE
     Dosage: 0.13 MILLILITRE ,QD
     Route: 058
     Dates: start: 202011
  5. TEDUGLUTIDE [Suspect]
     Active Substance: TEDUGLUTIDE
     Indication: SHORT-BOWEL SYNDROME
     Dosage: 0.31 MILLILITER, QD
     Route: 058
     Dates: start: 20201120
  6. TEDUGLUTIDE [Suspect]
     Active Substance: TEDUGLUTIDE
     Indication: CROHN^S DISEASE
     Dosage: 0.13 MILLILITRE ,QD
     Route: 058
     Dates: start: 202011
  7. TEDUGLUTIDE [Suspect]
     Active Substance: TEDUGLUTIDE
     Indication: CROHN^S DISEASE
     Dosage: 0.13 MILLILITRE ,QD
     Route: 058
     Dates: start: 202011
  8. TEDUGLUTIDE [Suspect]
     Active Substance: TEDUGLUTIDE
     Indication: CROHN^S DISEASE
     Dosage: 0.13 MILLILITRE ,QD
     Route: 058
     Dates: start: 202011

REACTIONS (16)
  - Weight decreased [Recovering/Resolving]
  - Unevaluable event [Unknown]
  - Product solubility abnormal [Unknown]
  - Cardiac failure congestive [Unknown]
  - Fracture [Unknown]
  - Fall [Unknown]
  - Pneumonia [Unknown]
  - Sinusitis [Not Recovered/Not Resolved]
  - Product dose omission issue [Unknown]
  - Fluid retention [Unknown]
  - Diarrhoea [Unknown]
  - Vomiting [Unknown]
  - Arthritis [Unknown]
  - Wrong technique in product usage process [Unknown]
  - Emergency care [Unknown]
  - Post procedural complication [Not Recovered/Not Resolved]

NARRATIVE: CASE EVENT DATE: 20210222
